FAERS Safety Report 7636642-X (Version None)
Quarter: 2011Q3

REPORT INFORMATION
  Report Type: 
  Country: None (occurrence: None)
  Receive Date: 20110726
  Receipt Date: 20110715
  Transmission Date: 20111222
  Serious: No
  Sender: FDA-Public Use
  Company Number: US-BIOGENIDEC-2011BI026652

PATIENT
  Age: 33 Year
  Sex: Female

DRUGS (1)
  1. TYSABRI [Suspect]
     Indication: MULTIPLE SCLEROSIS
     Route: 042
     Dates: start: 20110110

REACTIONS (12)
  - AMENORRHOEA [None]
  - FALL [None]
  - SPINAL COLUMN INJURY [None]
  - LIMB INJURY [None]
  - CONSTIPATION [None]
  - EXCORIATION [None]
  - WEIGHT INCREASED [None]
  - MENORRHAGIA [None]
  - MENSTRUATION IRREGULAR [None]
  - OEDEMA PERIPHERAL [None]
  - FIBROMYALGIA [None]
  - LACERATION [None]
